FAERS Safety Report 19949691 (Version 1)
Quarter: 2021Q4

REPORT INFORMATION
  Report Type: Spontaneous
  Country: RU (occurrence: RU)
  Receive Date: 20211013
  Receipt Date: 20211013
  Transmission Date: 20220303
  Serious: Yes (Death, Other)
  Sender: FDA-Public Use
  Company Number: RU-NOVARTISPH-NVSC2021RU233577

PATIENT
  Age: 62 Year
  Sex: Female

DRUGS (3)
  1. MIDOSTAURIN [Suspect]
     Active Substance: MIDOSTAURIN
     Indication: Acute myeloid leukaemia
     Dosage: 50 MG, BID (ON DAY 8 TO 21)
     Route: 048
     Dates: start: 201909
  2. MIDOSTAURIN [Suspect]
     Active Substance: MIDOSTAURIN
     Dosage: 50 MG, BID (ON DAYS 1 TO 28)
     Route: 065
     Dates: start: 202004
  3. IDARAC [Concomitant]
     Active Substance: FLOCTAFENINE
     Indication: Product used for unknown indication
     Dosage: 1 G/M2, BID (6 INJECTIONS)
     Route: 065

REACTIONS (3)
  - Death [Fatal]
  - Acute myeloid leukaemia recurrent [Recovering/Resolving]
  - Lymphocytic infiltration [Unknown]

NARRATIVE: CASE EVENT DATE: 20200601
